FAERS Safety Report 24748676 (Version 1)
Quarter: 2024Q4

REPORT INFORMATION
  Report Type: Spontaneous
  Country: EG (occurrence: EG)
  Receive Date: 20241218
  Receipt Date: 20241218
  Transmission Date: 20250115
  Serious: No
  Sender: SANDOZ
  Company Number: EG-SANDOZ-SDZ2024EG101998

PATIENT
  Sex: Male

DRUGS (1)
  1. OMNITROPE [Suspect]
     Active Substance: SOMATROPIN
     Indication: Short stature
     Dosage: UNK
     Route: 058

REACTIONS (5)
  - Skin discolouration [Not Recovered/Not Resolved]
  - Expired device used [Unknown]
  - Drug administered in wrong device [Unknown]
  - Incorrect dose administered [Unknown]
  - Device defective [Unknown]
